FAERS Safety Report 25606293 (Version 1)
Quarter: 2025Q3

REPORT INFORMATION
  Report Type: Spontaneous
  Country: US (occurrence: None)
  Receive Date: 20250724
  Receipt Date: 20250724
  Transmission Date: 20251021
  Serious: Yes (Disabling, Other)
  Sender: FDA-CTU
  Company Number: None

PATIENT
  Age: 54 Year
  Sex: Female
  Weight: 63 kg

DRUGS (11)
  1. CIPROFLOXACIN [Suspect]
     Active Substance: CIPROFLOXACIN
  2. METFORMIN [Concomitant]
     Active Substance: METFORMIN HYDROCHLORIDE
  3. RINVOQ [Concomitant]
     Active Substance: UPADACITINIB
  4. PROTONIX [Concomitant]
     Active Substance: PANTOPRAZOLE SODIUM
  5. CELEBREX [Concomitant]
     Active Substance: CELECOXIB
  6. ESTRADIOL [Concomitant]
     Active Substance: ESTRADIOL
  7. TRAMADOL [Concomitant]
     Active Substance: TRAMADOL
  8. TYLENOL [Concomitant]
     Active Substance: ACETAMINOPHEN
  9. ROBAXIN [Concomitant]
     Active Substance: METHOCARBAMOL
  10. ZYRTEC [Concomitant]
     Active Substance: CETIRIZINE HYDROCHLORIDE
  11. FLONASE [Concomitant]
     Active Substance: FLUTICASONE PROPIONATE

REACTIONS (7)
  - Autoimmune disorder [None]
  - Psoriatic arthropathy [None]
  - Impaired work ability [None]
  - Pain [None]
  - Musculoskeletal stiffness [None]
  - Fatigue [None]
  - Tendon disorder [None]

NARRATIVE: CASE EVENT DATE: 20250205
